FAERS Safety Report 17870165 (Version 1)
Quarter: 2020Q2

REPORT INFORMATION
  Report Type: Spontaneous
  Country: US (occurrence: US)
  Receive Date: 20200605
  Receipt Date: 20200605
  Transmission Date: 20200714
  Serious: Yes (Hospitalization)
  Sender: FDA-Public Use
  Company Number: None

PATIENT
  Age: 72 Year
  Sex: Male

DRUGS (18)
  1. CARVEDILOL. [Concomitant]
     Active Substance: CARVEDILOL
  2. TOPROL XL [Concomitant]
     Active Substance: METOPROLOL SUCCINATE
  3. VENTOLIN HFA [Concomitant]
     Active Substance: ALBUTEROL SULFATE
  4. CLOPIDOGREL [Concomitant]
     Active Substance: CLOPIDOGREL BISULFATE
  5. REPATHA [Concomitant]
     Active Substance: EVOLOCUMAB
  6. HYDROCHLOROT [Concomitant]
     Active Substance: HYDROCHLOROTHIAZIDE
  7. PIOGLITAZONE. [Concomitant]
     Active Substance: PIOGLITAZONE
  8. NITROGLYCRN [Concomitant]
  9. QUINAPRIL. [Concomitant]
     Active Substance: QUINAPRIL
  10. ROSUVASTATIN. [Concomitant]
     Active Substance: ROSUVASTATIN
  11. TRULICITY [Concomitant]
     Active Substance: DULAGLUTIDE
  12. RANEXA [Concomitant]
     Active Substance: RANOLAZINE
  13. MULTIVITAMIN [Concomitant]
     Active Substance: VITAMINS
  14. REPATHA [Suspect]
     Active Substance: EVOLOCUMAB
     Indication: HYPERLIPIDAEMIA
     Route: 058
     Dates: start: 20180830
  15. ATORVASTATIN [Concomitant]
     Active Substance: ATORVASTATIN
  16. BAYER ASA [Concomitant]
  17. METFORMIN [Concomitant]
     Active Substance: METFORMIN HYDROCHLORIDE
  18. MONTELUKAST [Concomitant]
     Active Substance: MONTELUKAST SODIUM

REACTIONS (1)
  - Cerebrovascular accident [None]

NARRATIVE: CASE EVENT DATE: 202001
